FAERS Safety Report 10240954 (Version 1)
Quarter: 2014Q2

REPORT INFORMATION
  Report Type: Spontaneous
  Country: US (occurrence: US)
  Receive Date: 20140617
  Receipt Date: 20140617
  Transmission Date: 20141212
  Serious: No
  Sender: FDA-Public Use
  Company Number: US-BAYER-2014-090453

PATIENT
  Age: 2 Year
  Sex: Male
  Weight: 16 kg

DRUGS (1)
  1. ALEVE CAPLET [Suspect]
     Dosage: AT THE MOST 10 DF, ONCE
     Route: 048
     Dates: start: 20140613, end: 20140613

REACTIONS (2)
  - Accidental exposure to product by child [None]
  - Vomiting [Recovered/Resolved]
